FAERS Safety Report 12898037 (Version 1)
Quarter: 2016Q4

REPORT INFORMATION
  Report Type: Spontaneous
  Country: US (occurrence: US)
  Receive Date: 20161031
  Receipt Date: 20161031
  Transmission Date: 20170207
  Serious: Yes (Hospitalization)
  Sender: FDA-Public Use
  Company Number: US-ASTRAZENECA-2016SF11998

PATIENT
  Age: 21985 Day
  Sex: Female
  Weight: 83 kg

DRUGS (4)
  1. LYNPARZA [Suspect]
     Active Substance: OLAPARIB
     Indication: NEOPLASM MALIGNANT
     Route: 048
     Dates: start: 20160923, end: 20160926
  2. HUMALOG [Concomitant]
     Active Substance: INSULIN LISPRO
     Indication: BLOOD GLUCOSE ABNORMAL
     Route: 058
     Dates: start: 2011
  3. STOOL SOFTENER (DOCUSATE CALCIUM) [Concomitant]
     Active Substance: DOCUSATE CALCIUM
  4. TOUJEO INSULIN [Concomitant]
     Indication: BLOOD GLUCOSE ABNORMAL
     Dosage: 52, AT NIGHT
     Route: 058
     Dates: start: 2011

REACTIONS (11)
  - Salivary hypersecretion [Unknown]
  - Small intestinal obstruction [Unknown]
  - Amnesia [Unknown]
  - Vomiting [Unknown]
  - Dyspepsia [Unknown]
  - Drug dose omission [Unknown]
  - Cough [Unknown]
  - Burning sensation [Unknown]
  - Fall [Unknown]
  - Nausea [Unknown]
  - Product difficult to swallow [Unknown]

NARRATIVE: CASE EVENT DATE: 20160924
